FAERS Safety Report 24700617 (Version 1)
Quarter: 2024Q4

REPORT INFORMATION
  Report Type: Spontaneous
  Country: CN (occurrence: CN)
  Receive Date: 20241205
  Receipt Date: 20241205
  Transmission Date: 20250114
  Serious: Yes (Other)
  Sender: ACCORD
  Company Number: CN-MLMSERVICE-20241120-PI264891-00077-1

PATIENT
  Age: 60 Year
  Sex: Male

DRUGS (3)
  1. CAPECITABINE [Suspect]
     Active Substance: CAPECITABINE
     Indication: Sarcomatoid carcinoma
     Dosage: 1.5 G, D1-D14
     Dates: start: 20230610, end: 20230616
  2. CISPLATIN [Suspect]
     Active Substance: CISPLATIN
     Indication: Sarcomatoid carcinoma
     Dosage: 60 MG, ON D1-D2
     Dates: start: 20230610, end: 20230611
  3. DOCETAXEL [Suspect]
     Active Substance: DOCETAXEL
     Indication: Sarcomatoid carcinoma
     Dosage: 350 MG, D1
     Dates: start: 20230610, end: 20230610

REACTIONS (2)
  - Seizure [Unknown]
  - Anaemia [Unknown]

NARRATIVE: CASE EVENT DATE: 20230616
